FAERS Safety Report 22770529 (Version 11)
Quarter: 2025Q2

REPORT INFORMATION
  Report Type: Spontaneous
  Country: US (occurrence: US)
  Receive Date: 20230801
  Receipt Date: 20250402
  Transmission Date: 20250717
  Serious: No
  Sender: SANOFI AVENTIS
  Company Number: US-SA-SAC20230728001251

PATIENT
  Age: 72 Year
  Sex: Female
  Weight: 58.5 kg

DRUGS (19)
  1. DUPIXENT [Suspect]
     Active Substance: DUPILUMAB
     Indication: Dermatitis atopic
     Route: 058
     Dates: start: 20230707, end: 20230707
  2. DUPIXENT [Suspect]
     Active Substance: DUPILUMAB
     Indication: Eczema
     Dosage: 300 MG, QOW
     Route: 058
     Dates: start: 202307, end: 202503
  3. FLUOCINONIDE [Concomitant]
     Active Substance: FLUOCINONIDE
     Dates: start: 20210824
  4. ACYCLOVIR [Concomitant]
     Active Substance: ACYCLOVIR
     Dosage: AFFECTED AREA UP TO FOUR TIMES DAILY
     Dates: start: 20190426, end: 20191230
  5. ASPIRIN [Concomitant]
     Active Substance: ASPIRIN
     Dosage: UNK UNK, QD
     Route: 048
     Dates: start: 20170425
  6. CALCIUM CITRATE\CHOLECALCIFEROL [Concomitant]
     Active Substance: CALCIUM CITRATE\CHOLECALCIFEROL
     Dosage: 1 DF, TID
     Route: 048
     Dates: start: 20140915
  7. FLUCONAZOLE [Concomitant]
     Active Substance: FLUCONAZOLE
     Route: 048
     Dates: start: 20211226, end: 20220110
  8. METHOCARBAMOL [Concomitant]
     Active Substance: METHOCARBAMOL
     Indication: Muscle spasms
     Dosage: 1 DF, Q8H
     Route: 048
     Dates: start: 20181212
  9. METOPROLOL SUCCINATE [Concomitant]
     Active Substance: METOPROLOL SUCCINATE
     Dosage: 1 DF, HS
     Route: 048
     Dates: start: 20191028
  10. VITAMINS NOS [Concomitant]
     Active Substance: VITAMINS
     Dosage: 1 DF, QD
     Route: 048
     Dates: start: 20140915
  11. PREDNISONE [Concomitant]
     Active Substance: PREDNISONE
     Route: 048
     Dates: start: 20230519
  12. PREDNISONE [Concomitant]
     Active Substance: PREDNISONE
     Route: 048
     Dates: start: 2023
  13. PREDNISONE [Concomitant]
     Active Substance: PREDNISONE
     Route: 048
     Dates: start: 2023, end: 2023
  14. SIMVASTATIN [Concomitant]
     Active Substance: SIMVASTATIN
     Dosage: 1 DF, QD
     Route: 048
     Dates: start: 20191017
  15. TRAMADOL HYDROCHLORIDE [Concomitant]
     Active Substance: TRAMADOL HYDROCHLORIDE
     Dosage: 1 DF, TID
     Route: 048
     Dates: start: 20170425
  16. TRIAMCINOLONE ACETONIDE [Concomitant]
     Active Substance: TRIAMCINOLONE ACETONIDE
     Dosage: 17.	APPLY SPARINGLY AND MASSAGE IN TWICE DAILY
     Dates: start: 20230123
  17. TYLENOL EXTRA STRENGTH [Concomitant]
     Active Substance: ACETAMINOPHEN
     Route: 048
     Dates: start: 20140915
  18. UBRELVY [Concomitant]
     Active Substance: UBROGEPANT
     Indication: Migraine
     Route: 048
     Dates: start: 20200617
  19. ZOLPIDEM TARTRATE [Concomitant]
     Active Substance: ZOLPIDEM TARTRATE
     Dosage: 1 DF, HS
     Route: 048
     Dates: start: 20191112

REACTIONS (11)
  - Cough [Unknown]
  - Urticaria [Unknown]
  - Pruritus [Unknown]
  - Dry eye [Unknown]
  - Vision blurred [Unknown]
  - Eye pruritus [Unknown]
  - Condition aggravated [Unknown]
  - Eye irritation [Unknown]
  - Injection site pain [Unknown]
  - Eczema [Unknown]
  - Rash [Unknown]

NARRATIVE: CASE EVENT DATE: 20230101
